FAERS Safety Report 15714869 (Version 2)
Quarter: 2019Q1

REPORT INFORMATION
  Report Type: Spontaneous
  Country: GB (occurrence: GB)
  Receive Date: 20181212
  Receipt Date: 20190108
  Transmission Date: 20190417
  Serious: Yes (Disabling, Other)
  Sender: FDA-Public Use
  Company Number: GB-TEVA-2018-GB-985123

PATIENT
  Age: 37 Year
  Sex: Male
  Weight: 71.66 kg

DRUGS (5)
  1. PROBIOTIC [Concomitant]
     Active Substance: PROBIOTICS NOS
  2. METRONIDAZOLE. [Suspect]
     Active Substance: METRONIDAZOLE
     Indication: GASTROINTESTINAL BACTERIAL OVERGROWTH
     Dosage: SORRY CAN^T REMEMBER
     Route: 048
     Dates: start: 20180708, end: 20180712
  3. PARACETAMOL [Concomitant]
     Active Substance: ACETAMINOPHEN
  4. MAGNESIUM [Concomitant]
     Active Substance: MAGNESIUM
  5. THIAMINE. [Concomitant]
     Active Substance: THIAMINE

REACTIONS (12)
  - Sinus disorder [Not Recovered/Not Resolved]
  - Abdominal pain upper [Not Recovered/Not Resolved]
  - Dizziness [Not Recovered/Not Resolved]
  - Feeling abnormal [Not Recovered/Not Resolved]
  - Balance disorder [Not Recovered/Not Resolved]
  - Anxiety [Not Recovered/Not Resolved]
  - Headache [Not Recovered/Not Resolved]
  - Irritable bowel syndrome [Unknown]
  - Depression [Not Recovered/Not Resolved]
  - Tinnitus [Not Recovered/Not Resolved]
  - Nausea [Recovering/Resolving]
  - Hyperacusis [Not Recovered/Not Resolved]

NARRATIVE: CASE EVENT DATE: 20180711
